FAERS Safety Report 21766326 (Version 1)
Quarter: 2022Q4

REPORT INFORMATION
  Report Type: Spontaneous
  Country: JP (occurrence: JP)
  Receive Date: 20221222
  Receipt Date: 20221222
  Transmission Date: 20230113
  Serious: Yes (Other)
  Sender: FDA-Public Use
  Company Number: JP-PFIZER INC-202200377386

PATIENT
  Age: 8 Decade
  Sex: Male

DRUGS (1)
  1. LORLATINIB [Suspect]
     Active Substance: LORLATINIB
     Dosage: UNK

REACTIONS (4)
  - Hallucination, visual [Recovering/Resolving]
  - Parasomnia [Recovering/Resolving]
  - Abnormal behaviour [Recovering/Resolving]
  - Disorientation [Recovering/Resolving]
